FAERS Safety Report 22065610 (Version 1)
Quarter: 2023Q1

REPORT INFORMATION
  Report Type: Spontaneous
  Country: US (occurrence: None)
  Receive Date: 20230304
  Receipt Date: 20230304
  Transmission Date: 20230417
  Serious: Yes (unspecified)
  Sender: FDA-Public Use
  Company Number: None

PATIENT
  Age: 71 Year
  Sex: Male
  Weight: 78.75 kg

DRUGS (1)
  1. RESTASIS [Suspect]
     Active Substance: CYCLOSPORINE
     Indication: Lacrimation decreased
     Dates: start: 20141110, end: 20150701

REACTIONS (3)
  - Upper respiratory tract infection [None]
  - Disease recurrence [None]
  - Therapy cessation [None]

NARRATIVE: CASE EVENT DATE: 20150510
